FAERS Safety Report 10246559 (Version 6)
Quarter: 2015Q1

REPORT INFORMATION
  Report Type: Spontaneous
  Country: DE (occurrence: None)
  Receive Date: 20140617
  Receipt Date: 20150218
  Transmission Date: 20150720
  Serious: Yes (Other)
  Sender: FDA-Public Use
  Company Number: DE-20140085

PATIENT
  Age: 43 Year
  Sex: Male

DRUGS (2)
  1. DOTAREM [Suspect]
     Active Substance: GADOTERATE MEGLUMINE
     Indication: NUCLEAR MAGNETIC RESONANCE IMAGING BRAIN
     Dosage: 15 ML (15 ML, 1 IN 1 D), INTRAVNEOUS (NOT OTHERWISE SPECIFIED)?
     Route: 042
     Dates: start: 20140326, end: 20140326
  2. ZINKOROT (ZINC OROTATE) [Concomitant]

REACTIONS (41)
  - Visual impairment [None]
  - Pain in extremity [None]
  - Pain [None]
  - Blood cholesterol increased [None]
  - Visceral pain [None]
  - Paraesthesia [None]
  - Nausea [None]
  - Rash [None]
  - Sneezing [None]
  - Paraesthesia oral [None]
  - Dry skin [None]
  - Eye irritation [None]
  - Bone pain [None]
  - Headache [None]
  - Dysphagia [None]
  - Pigmentation disorder [None]
  - Poor quality sleep [None]
  - Insomnia [None]
  - Arthralgia [None]
  - Vision blurred [None]
  - Testis discomfort [None]
  - Alopecia [None]
  - Muscle disorder [None]
  - Renal pain [None]
  - Ear pain [None]
  - Impaired work ability [None]
  - Skin wrinkling [None]
  - Contrast media reaction [None]
  - Burning sensation [None]
  - Myalgia [None]
  - Diarrhoea [None]
  - Musculoskeletal pain [None]
  - Pain of skin [None]
  - Rash pruritic [None]
  - Rash generalised [None]
  - Movement disorder [None]
  - Pruritus generalised [None]
  - Feeling hot [None]
  - Swelling face [None]
  - Eye pruritus [None]
  - Eosinopenia [None]

NARRATIVE: CASE EVENT DATE: 2014
